FAERS Safety Report 15749695 (Version 1)
Quarter: 2018Q4

REPORT INFORMATION
  Report Type: Spontaneous
  Country: US (occurrence: US)
  Receive Date: 20181221
  Receipt Date: 20181221
  Transmission Date: 20190205
  Serious: Yes (Hospitalization, Other)
  Sender: FDA-Public Use
  Company Number: US-VELOXIS PHARMACEUTICALS, INC.-2018VELUS1305

PATIENT
  Age: 62 Year
  Sex: Male

DRUGS (4)
  1. ENVARSUS XR [Suspect]
     Active Substance: TACROLIMUS
     Indication: LUNG TRANSPLANT
     Route: 065
  2. MYCOPHENOLATE MOFETIL. [Suspect]
     Active Substance: MYCOPHENOLATE MOFETIL
     Indication: LUNG TRANSPLANT
     Dosage: UNK
     Route: 065
  3. PREDNISONE. [Suspect]
     Active Substance: PREDNISONE
     Indication: LUNG TRANSPLANT
     Dosage: 5 MG, UNK
  4. RITUXIMAB. [Concomitant]
     Active Substance: RITUXIMAB
     Indication: LUNG TRANSPLANT
     Dosage: UNK, ONCE WEEKLY

REACTIONS (4)
  - Lymphoproliferative disorder [Recovered/Resolved]
  - Transplant rejection [Unknown]
  - Intentional product use issue [Unknown]
  - Influenza A virus test positive [Unknown]
